FAERS Safety Report 14804008 (Version 2)
Quarter: 2019Q1

REPORT INFORMATION
  Report Type: Spontaneous
  Country: US (occurrence: US)
  Receive Date: 20180425
  Receipt Date: 20190218
  Transmission Date: 20190417
  Serious: No
  Sender: FDA-Public Use
  Company Number: US-PFIZER INC-2018167507

PATIENT
  Age: 73 Year
  Sex: Female
  Weight: 41 kg

DRUGS (1)
  1. XELJANZ [Suspect]
     Active Substance: TOFACITINIB CITRATE
     Indication: MOTOR DYSFUNCTION
     Dosage: 5 MG, 2X/DAY
     Route: 048

REACTIONS (4)
  - Sensitivity to weather change [Unknown]
  - Product use in unapproved indication [Unknown]
  - Speech disorder [Unknown]
  - Malaise [Unknown]
